FAERS Safety Report 8447503-0 (Version None)
Quarter: 2012Q2

REPORT INFORMATION
  Report Type: 
  Country: None (occurrence: None)
  Receive Date: 20120619
  Receipt Date: 20120613
  Transmission Date: 20120825
  Serious: Yes (Other)
  Sender: FDA-Public Use
  Company Number: KR-BAYER-2012-058754

PATIENT
  Sex: Male

DRUGS (2)
  1. NEXAVAR [Suspect]
     Dosage: UNK
     Route: 048
     Dates: start: 20120401
  2. NEXAVAR [Suspect]
     Route: 048

REACTIONS (1)
  - SCROTAL ABSCESS [None]
